FAERS Safety Report 6867664-4 (Version None)
Quarter: 2010Q3

REPORT INFORMATION
  Report Type: 
  Country: None (occurrence: None)
  Receive Date: 20100722
  Receipt Date: 20100215
  Transmission Date: 20110219
  Serious: No
  Sender: FDA-Public Use
  Company Number: US-BAUSCH-2010BL000867

PATIENT
  Age: 25 Year
  Sex: Female

DRUGS (3)
  1. OPCON-A [Suspect]
     Indication: EYE IRRITATION
     Route: 047
     Dates: start: 20100214, end: 20100214
  2. OPCON-A [Suspect]
     Indication: ABNORMAL SENSATION IN EYE
     Route: 047
     Dates: start: 20100214, end: 20100214
  3. HORMONES AND RELATED AGENTS [Concomitant]
     Indication: ORAL CONTRACEPTION
     Route: 048

REACTIONS (1)
  - MYDRIASIS [None]
